FAERS Safety Report 23695912 (Version 1)
Quarter: 2024Q2

REPORT INFORMATION
  Report Type: Spontaneous
  Country: FR (occurrence: FR)
  Receive Date: 20240402
  Receipt Date: 20240402
  Transmission Date: 20240716
  Serious: Yes (Other)
  Sender: FDA-Public Use
  Company Number: FR-CELLTRION INC.-2024FR007837

PATIENT

DRUGS (1)
  1. TRUXIMA [Suspect]
     Active Substance: RITUXIMAB-ABBS
     Indication: Vasculitis
     Dosage: 640 MG, 1/WEEK
     Route: 042
     Dates: start: 20201030, end: 20201110

REACTIONS (5)
  - Motor dysfunction [Recovering/Resolving]
  - Sensory loss [Recovering/Resolving]
  - Limb discomfort [Recovering/Resolving]
  - Muscle strength abnormal [Recovered/Resolved]
  - Ataxia [Recovered/Resolved]

NARRATIVE: CASE EVENT DATE: 20201102
